FAERS Safety Report 16949821 (Version 1)
Quarter: 2019Q4

REPORT INFORMATION
  Report Type: Report from Study
  Country: CA (occurrence: CA)
  Receive Date: 20191023
  Receipt Date: 20191023
  Transmission Date: 20200122
  Serious: Yes (Other)
  Sender: FDA-Public Use
  Company Number: CA-GLAXOSMITHKLINE-CA2019AMR187626

PATIENT
  Sex: Male

DRUGS (1)
  1. MEPOLIZUMAB [Suspect]
     Active Substance: MEPOLIZUMAB
     Indication: ASTHMA
     Dosage: 100 MG, Z(MONTHLY)
     Route: 042
     Dates: start: 20180118

REACTIONS (6)
  - Skin abrasion [Unknown]
  - Erythema [Unknown]
  - Ecchymosis [Recovering/Resolving]
  - Limb injury [Unknown]
  - Peripheral swelling [Recovering/Resolving]
  - Wound infection [Unknown]
